FAERS Safety Report 12807378 (Version 1)
Quarter: 2016Q4

REPORT INFORMATION
  Report Type: Spontaneous
  Country: US (occurrence: US)
  Receive Date: 20161003
  Receipt Date: 20161003
  Transmission Date: 20170207
  Serious: No
  Sender: FDA-Public Use
  Company Number: None

PATIENT
  Age: 27 Year
  Sex: Female
  Weight: 63.5 kg

DRUGS (2)
  1. METRONIDAZOLE. [Suspect]
     Active Substance: METRONIDAZOLE
     Dates: start: 20161003
  2. CEPHALEXIN 500 AUROBINDO [Suspect]
     Active Substance: CEPHALEXIN
     Dates: start: 20161003, end: 20161003

REACTIONS (1)
  - Maternal exposure during pregnancy [None]
